FAERS Safety Report 7502436-9 (Version None)
Quarter: 2011Q2

REPORT INFORMATION
  Report Type: 
  Country: None (occurrence: None)
  Receive Date: 20110523
  Receipt Date: 20110523
  Transmission Date: 20111010
  Serious: Yes (Other)
  Sender: FDA-Public Use
  Company Number: None

PATIENT
  Sex: Female
  Weight: 65.7716 kg

DRUGS (5)
  1. CARDIZEM [Concomitant]
  2. SINGULAIR [Suspect]
     Indication: ASTHMA
     Dosage: 10MG QD PO
     Route: 048
     Dates: start: 19950101, end: 20110301
  3. LEVOXYL [Concomitant]
  4. MENOSTAR [Concomitant]
  5. LISINOPRIL [Concomitant]

REACTIONS (2)
  - TINNITUS [None]
  - ATRIAL FIBRILLATION [None]
